FAERS Safety Report 8815251 (Version 1)
Quarter: 2012Q4

REPORT INFORMATION
  Report Type: 
  Country: CH (occurrence: CH)
  Receive Date: 20120928
  Receipt Date: 20120928
  Transmission Date: 20130627
  Serious: Yes (Hospitalization, Other)
  Sender: FDA-Public Use
  Company Number: CH-JNJFOC-20120908949

PATIENT
  Age: 79 Year
  Sex: Male
  Weight: 79 kg

DRUGS (7)
  1. SPORANOX [Suspect]
     Indication: BRONCHOPULMONARY ASPERGILLOSIS
     Route: 048
     Dates: start: 20120502
  2. PIRFENIDONE [Suspect]
     Indication: UTERINE LEIOMYOMA
     Route: 048
     Dates: start: 20120116
  3. PIRFENIDONE [Suspect]
     Indication: INTERSTITIAL LUNG DISEASE
     Route: 048
     Dates: start: 20120116
  4. PREDNISON [Suspect]
     Indication: UTERINE LEIOMYOMA
     Route: 048
     Dates: start: 201012
  5. PREDNISON [Suspect]
     Indication: INTERSTITIAL LUNG DISEASE
     Route: 048
     Dates: start: 201012
  6. MODURETIC [Suspect]
     Indication: PRODUCT USED FOR UNKNOWN INDICATION
     Route: 048
     Dates: start: 201111, end: 20120816
  7. CITALOPRAM [Suspect]
     Indication: DEPRESSION
     Route: 048
     Dates: start: 2010, end: 20120816

REACTIONS (10)
  - Abnormal behaviour [Recovering/Resolving]
  - Confusional state [Recovering/Resolving]
  - Hyponatraemia [Recovered/Resolved]
  - Fungal infection [Unknown]
  - Irritability [None]
  - Aggression [None]
  - Persecutory delusion [None]
  - Social avoidant behaviour [None]
  - Incoherent [None]
  - Hallucination, visual [None]
